FAERS Safety Report 7998960-5 (Version None)
Quarter: 2011Q4

REPORT INFORMATION
  Report Type: 
  Country: None (occurrence: None)
  Receive Date: 20111221
  Receipt Date: 20111213
  Transmission Date: 20120403
  Serious: Yes (Other)
  Sender: FDA-Public Use
  Company Number: CHPA2011US017995

PATIENT
  Age: 70 Year
  Sex: Female

DRUGS (4)
  1. NICOTINE [Suspect]
     Dosage: 21 MG, QD
     Route: 062
  2. NICOTINE [Suspect]
     Dosage: 14 MG, QD
     Route: 062
  3. NICOTINE [Suspect]
     Indication: SMOKING CESSATION THERAPY
     Dosage: 21 MG, TID
     Route: 062
  4. NICOTINE [Suspect]
     Dosage: 7 MG, QD
     Route: 062

REACTIONS (3)
  - NICOTINE DEPENDENCE [None]
  - PNEUMONIA [None]
  - INCORRECT DRUG ADMINISTRATION DURATION [None]
